FAERS Safety Report 4710003-5 (Version None)
Quarter: 2005Q3

REPORT INFORMATION
  Report Type: 
  Country: None (occurrence: None)
  Receive Date: 20050708
  Receipt Date: 20050513
  Transmission Date: 20060218
  Serious: Yes (Other)
  Sender: FDA-Public Use
  Company Number: PHNU2005DE01955

PATIENT
  Age: 67 Year
  Sex: Female

DRUGS (3)
  1. ZOMETA [Suspect]
     Indication: BREAST CANCER METASTATIC
     Dosage: 4 MG, QMO
     Route: 042
     Dates: start: 20020308, end: 20050125
  2. AROMASIN [Concomitant]
     Indication: BREAST CANCER METASTATIC
     Route: 048
     Dates: start: 20020308, end: 20050125
  3. RADIATION THERAPY [Concomitant]
     Indication: METASTASIS
     Dosage: 40 GY
     Dates: start: 20020221, end: 20020325

REACTIONS (5)
  - ASEPTIC NECROSIS BONE [None]
  - OSTEOMYELITIS [None]
  - PRIMARY SEQUESTRUM [None]
  - SEQUESTRECTOMY [None]
  - WOUND DEBRIDEMENT [None]
